FAERS Safety Report 16028386 (Version 1)
Quarter: 2019Q1

REPORT INFORMATION
  Report Type: Spontaneous
  Country: US (occurrence: US)
  Receive Date: 20190304
  Receipt Date: 20190304
  Transmission Date: 20190418
  Serious: Yes (Hospitalization)
  Sender: FDA-Public Use
  Company Number: US-IPSEN BIOPHARMACEUTICALS, INC.-2019-02871

PATIENT
  Age: 59 Year
  Sex: Male
  Weight: 95.1 kg

DRUGS (15)
  1. ACETAMINOPHEN. [Concomitant]
     Active Substance: ACETAMINOPHEN
     Indication: ABDOMINAL PAIN
     Dosage: 325
     Dates: start: 20181215
  2. CREON [Concomitant]
     Active Substance: PANCRELIPASE AMYLASE\PANCRELIPASE LIPASE\PANCRELIPASE PROTEASE
     Indication: DYSPEPSIA
     Dates: start: 20181214
  3. FLAX SEEDS [Concomitant]
     Active Substance: FLAX SEEDS
     Dates: start: 2016
  4. ONDASENTRON [Concomitant]
     Indication: VOMITING
     Route: 042
     Dates: start: 20190115, end: 20190117
  5. VITAMIN C COMPLEX [Concomitant]
     Dates: start: 1990
  6. DEXAMETHAXON [Concomitant]
     Indication: GOUT
     Dosage: ONCE
     Route: 030
     Dates: start: 20181218, end: 20181218
  7. HYDROMORPHON [Concomitant]
     Active Substance: HYDROMORPHONE
     Indication: PAIN
     Dates: start: 20181206
  8. MARIJUANA LIQUID [Concomitant]
     Indication: PAIN
     Dates: start: 20181015
  9. METOCLOPRAMID [Concomitant]
     Active Substance: METOCLOPRAMIDE
     Indication: DYSPEPSIA
     Dates: start: 20190101
  10. VITAMIN B COMPLEX [Concomitant]
     Active Substance: CYANOCOBALAMIN\DEXPANTHENOL\NIACINAMIDE\PYRIDOXINE HYDROCHLORIDE\RIBOFLAVIN 5^-PHOSPHATE SODIUM\THIAMINE HYDROCHLORIDE\VITAMIN B COMPLEX
     Dates: start: 2008
  11. ONDASENTRON [Concomitant]
     Indication: NAUSEA
     Dates: start: 20181015
  12. MEGACE ELIXIR [Concomitant]
     Indication: DECREASED APPETITE
     Dates: start: 20190128
  13. ONIVYDE [Suspect]
     Active Substance: IRINOTECAN HYDROCHLORIDE
     Indication: PRODUCT USED FOR UNKNOWN INDICATION
     Route: 065
  14. TURMERIC POWDER FOOD SUPPLEMENT [Concomitant]
     Dates: start: 20181015
  15. LISINOPRIL. [Concomitant]
     Active Substance: LISINOPRIL
     Indication: BLOOD PRESSURE MEASUREMENT
     Dates: start: 2003

REACTIONS (1)
  - Azotaemia [Unknown]

NARRATIVE: CASE EVENT DATE: 20190221
